FAERS Safety Report 11665872 (Version 1)
Quarter: 2015Q4

REPORT INFORMATION
  Report Type: Spontaneous
  Country: US (occurrence: US)
  Receive Date: 20151027
  Receipt Date: 20151027
  Transmission Date: 20160304
  Serious: No
  Sender: FDA-Public Use
  Company Number: US-ELI_LILLY_AND_COMPANY-US201001002310

PATIENT
  Age: 78 Year
  Sex: Female

DRUGS (2)
  1. POTASSIUM [Concomitant]
     Active Substance: POTASSIUM
  2. FORTEO [Suspect]
     Active Substance: TERIPARATIDE
     Indication: OSTEOPOROSIS
     Dates: start: 200811

REACTIONS (7)
  - Ear infection [Unknown]
  - Viral infection [Unknown]
  - Incorrect dose administered [Unknown]
  - Medication error [Unknown]
  - Malaise [Unknown]
  - Visual impairment [Unknown]
  - Jaw disorder [Unknown]

NARRATIVE: CASE EVENT DATE: 20100111
